FAERS Safety Report 5841542-1 (Version None)
Quarter: 2008Q3

REPORT INFORMATION
  Report Type: 
  Country: None (occurrence: None)
  Receive Date: 20080812
  Receipt Date: 20080730
  Transmission Date: 20090109
  Serious: Yes (Other)
  Sender: FDA-Public Use
  Company Number: US-ROCHE-266730

PATIENT
  Age: 56 Year
  Sex: Male
  Weight: 102.1 kg

DRUGS (2)
  1. VALIUM [Suspect]
     Indication: ANXIETY
     Route: 048
     Dates: start: 19810101, end: 20040101
  2. CLONAZEPAM [Suspect]
     Indication: ANXIETY
     Route: 048
     Dates: start: 19970101

REACTIONS (6)
  - CONVULSION [None]
  - FIBROMYALGIA [None]
  - INTERVERTEBRAL DISC PROTRUSION [None]
  - NECK PAIN [None]
  - NIGHTMARE [None]
  - RHABDOMYOLYSIS [None]
